FAERS Safety Report 6403799-8 (Version None)
Quarter: 2009Q4

REPORT INFORMATION
  Report Type: 
  Country: None (occurrence: None)
  Receive Date: 20091016
  Receipt Date: 20091014
  Transmission Date: 20100525
  Serious: Yes (Death)
  Sender: FDA-Public Use
  Company Number: GB-JNJFOC-20091004303

PATIENT
  Sex: Female

DRUGS (5)
  1. RISPERDAL [Suspect]
     Indication: PARKINSON'S DISEASE
     Route: 048
  2. ROPINIROLE [Suspect]
     Indication: PARKINSON'S DISEASE
  3. FUROSEMIDE [Concomitant]
     Indication: DRUG USE FOR UNKNOWN INDICATION
     Route: 065
  4. CARBIDOPA [Concomitant]
     Indication: PARKINSON'S DISEASE
     Route: 065
  5. LEVODOPA [Concomitant]
     Indication: PARKINSON'S DISEASE
     Route: 065

REACTIONS (2)
  - DEATH [None]
  - WRONG DRUG ADMINISTERED [None]
